FAERS Safety Report 8164229-1 (Version None)
Quarter: 2012Q1

REPORT INFORMATION
  Report Type: 
  Country: None (occurrence: None)
  Receive Date: 20120224
  Receipt Date: 20111123
  Transmission Date: 20120608
  Serious: No
  Sender: FDA-Public Use
  Company Number: US-ASTRAZENECA-2011SE71186

PATIENT
  Age: 88 Year
  Sex: Female

DRUGS (2)
  1. VIMOVO [Suspect]
     Dosage: 2 PILLS A DAY
     Route: 048
  2. VIMOVO [Suspect]
     Indication: OSTEOARTHRITIS
     Dosage: FREQUENCY BID
     Route: 048

REACTIONS (7)
  - INTRAOCULAR PRESSURE TEST ABNORMAL [None]
  - VISUAL IMPAIRMENT [None]
  - FLATULENCE [None]
  - DIARRHOEA [None]
  - HYPERTENSION [None]
  - MALAISE [None]
  - ARTHRALGIA [None]
